FAERS Safety Report 4926984-0 (Version None)
Quarter: 2006Q1

REPORT INFORMATION
  Report Type: 
  Country: None (occurrence: None)
  Receive Date: 20060228
  Receipt Date: 20050927
  Transmission Date: 20060701
  Serious: No
  Sender: FDA-Public Use
  Company Number: US-GLAXOSMITHKLINE-A0576101A

PATIENT
  Age: 54 Year
  Sex: Female

DRUGS (9)
  1. LAMICTAL [Suspect]
     Indication: BIPOLAR DISORDER
     Dosage: 200MG AT NIGHT
     Route: 048
     Dates: start: 20050429
  2. LITHIUM CARBONATE [Suspect]
     Dosage: 300MG TWICE PER DAY
     Route: 048
     Dates: start: 20050922
  3. EFFEXOR [Concomitant]
  4. BUPROPION HCL [Concomitant]
  5. NEURONTIN [Concomitant]
  6. PROVIGIL [Concomitant]
  7. STRATTERA [Concomitant]
  8. TRAZODONE [Concomitant]
  9. SYNTHROID [Concomitant]

REACTIONS (3)
  - ERYTHEMA [None]
  - MEDICATION ERROR [None]
  - PRURITUS [None]
